FAERS Safety Report 18115874 (Version 1)
Quarter: 2020Q3

REPORT INFORMATION
  Report Type: Spontaneous
  Country: CN (occurrence: CN)
  Receive Date: 20200805
  Receipt Date: 20200805
  Transmission Date: 20201103
  Serious: Yes (Other)
  Sender: FDA-Public Use
  Company Number: CN-BAYER-2020-153595

PATIENT
  Age: 70 Year
  Sex: Male
  Weight: 65 kg

DRUGS (3)
  1. STIVARGA [Suspect]
     Active Substance: REGORAFENIB
     Indication: HEPATIC CANCER
     Dosage: 80 MG, QD
     Route: 048
     Dates: start: 20190201, end: 20191216
  2. NEXAVAR [Suspect]
     Active Substance: SORAFENIB
     Indication: HEPATIC CANCER
     Dosage: UNK
     Route: 048
     Dates: start: 2018, end: 20190131
  3. TUO YI [Suspect]
     Active Substance: TORIPALIMAB
     Indication: HEPATIC CANCER
     Dosage: 240 MG, Q3WK
     Route: 041
     Dates: start: 20190301, end: 20191209

REACTIONS (7)
  - Hepatic cancer recurrent [None]
  - Mouth ulceration [Recovering/Resolving]
  - Off label use [None]
  - Skin exfoliation [Recovering/Resolving]
  - Penile discharge [Recovering/Resolving]
  - Erosive balanitis [Recovering/Resolving]
  - Flushing [Recovering/Resolving]

NARRATIVE: CASE EVENT DATE: 20190201
